FAERS Safety Report 7935635-2 (Version None)
Quarter: 2011Q4

REPORT INFORMATION
  Report Type: 
  Country: None (occurrence: None)
  Receive Date: 20111123
  Receipt Date: 20111114
  Transmission Date: 20120403
  Serious: Yes (Other)
  Sender: FDA-Public Use
  Company Number: US-ELI_LILLY_AND_COMPANY-US201111005122

PATIENT
  Sex: Female

DRUGS (5)
  1. HUMULIN N [Suspect]
     Dosage: 26 U, UNKNOWN
     Dates: start: 20050101
  2. HUMULIN N [Suspect]
     Indication: DIABETES MELLITUS
     Dosage: UNK, PRN
     Dates: start: 20050101
  3. INSULIN [Concomitant]
  4. HUMULIN R [Suspect]
     Indication: DIABETES MELLITUS
     Dosage: UNK, PRN
  5. HUMULIN R [Suspect]
     Dosage: 4 U, UNKNOWN

REACTIONS (19)
  - FATIGUE [None]
  - LIMB INJURY [None]
  - HYPOGLYCAEMIA UNAWARENESS [None]
  - ARTHRITIS [None]
  - BURSITIS [None]
  - ARTHRALGIA [None]
  - HEAD INJURY [None]
  - TENDONITIS [None]
  - DRUG INEFFECTIVE [None]
  - THYROID DISORDER [None]
  - SHOCK HYPOGLYCAEMIC [None]
  - BLOOD GLUCOSE INCREASED [None]
  - HEARING IMPAIRED [None]
  - FALL [None]
  - HEADACHE [None]
  - CONTUSION [None]
  - BALANCE DISORDER [None]
  - BLOOD GLUCOSE DECREASED [None]
  - PAIN [None]
